FAERS Safety Report 8966041 (Version 1)
Quarter: 2012Q4

REPORT INFORMATION
  Report Type: Report from Study
  Country: GB (occurrence: US)
  Receive Date: 20121217
  Receipt Date: 20121217
  Transmission Date: 20130627
  Serious: Yes (Other)
  Sender: FDA-Public Use
  Company Number: US-BRISTOL-MYERS SQUIBB COMPANY-17191685

PATIENT

DRUGS (2)
  1. CETUXIMAB [Suspect]
     Indication: COLORECTAL CANCER METASTATIC
     Dosage: 29Mar10-D2-250mg/m2-D8,15-C1-250mg/m2
D1,8,15-C2-250mg/m2
3May10-D2,C1-250mg/m2,D1,8,15-C2
     Route: 042
     Dates: start: 20100329
  2. PERTUZUMAB [Suspect]
     Indication: COLORECTAL CANCER METASTATIC
     Dosage: 29Mar10-D1-C1,D1-C2-175mg
3May10-D1-C1,D1-C2-175mg
24May10-D1-C1,D1-C2-175mg
     Route: 042
     Dates: start: 20100329

REACTIONS (4)
  - Stomatitis [Unknown]
  - Pain of skin [Unknown]
  - Blood phosphorus decreased [Unknown]
  - Dermatitis acneiform [Unknown]
